FAERS Safety Report 8120082-3 (Version None)
Quarter: 2012Q1

REPORT INFORMATION
  Report Type: 
  Country: None (occurrence: None)
  Receive Date: 20120207
  Receipt Date: 20120125
  Transmission Date: 20120608
  Serious: Yes (Hospitalization)
  Sender: FDA-Public Use
  Company Number: AU-AMGEN-AUSCT2012006809

PATIENT

DRUGS (4)
  1. DOCETAXEL [Concomitant]
  2. CISPLATIN [Concomitant]
  3. FLUOROURACIL [Concomitant]
  4. PANITUMUMAB [Suspect]
     Indication: GASTROOESOPHAGEAL CANCER

REACTIONS (3)
  - PYREXIA [None]
  - INFUSION SITE THROMBOSIS [None]
  - VASCULAR ACCESS COMPLICATION [None]
